FAERS Safety Report 23411650 (Version 1)
Quarter: 2024Q1

REPORT INFORMATION
  Report Type: Spontaneous
  Country: FR (occurrence: FR)
  Receive Date: 20240117
  Receipt Date: 20240117
  Transmission Date: 20240410
  Serious: Yes (Hospitalization)
  Sender: FDA-Public Use
  Company Number: FR-ABBVIE-5582126

PATIENT
  Sex: Male

DRUGS (4)
  1. BOTOX [Suspect]
     Active Substance: ONABOTULINUMTOXINA
     Indication: Muscle spasticity
     Dosage: TIME INTERVAL: AS NECESSARY
     Route: 065
     Dates: start: 20231208, end: 20231208
  2. BOTOX [Suspect]
     Active Substance: ONABOTULINUMTOXINA
     Indication: Muscle spasticity
     Dosage: TIME INTERVAL: AS NECESSARY: FORM STRENGTH: 100 UNIT
     Route: 065
     Dates: start: 20210205, end: 20210205
  3. BOTOX [Suspect]
     Active Substance: ONABOTULINUMTOXINA
     Indication: Muscle spasticity
     Dosage: TIME INTERVAL: AS NECESSARY
     Route: 065
     Dates: start: 20231208, end: 20231208
  4. BOTOX [Suspect]
     Active Substance: ONABOTULINUMTOXINA
     Indication: Muscle spasticity
     Dosage: TIME INTERVAL: AS NECESSARY
     Route: 065

REACTIONS (9)
  - Pyrexia [Recovering/Resolving]
  - Fatigue [Recovering/Resolving]
  - Alopecia [Unknown]
  - Asthenia [Recovering/Resolving]
  - Dizziness [Unknown]
  - Swelling face [Recovered/Resolved]
  - Erythema [Recovering/Resolving]
  - Face oedema [Unknown]
  - Arthropod bite [Unknown]

NARRATIVE: CASE EVENT DATE: 20231222
